FAERS Safety Report 8260285 (Version 3)
Quarter: 2013Q1

REPORT INFORMATION
  Report Type: Spontaneous
  Country: US (occurrence: US)
  Receive Date: 20111122
  Receipt Date: 20130313
  Transmission Date: 20140127
  Serious: Yes (Life-Threatening, Hospitalization, Other)
  Sender: FDA-Public Use
  Company Number: US-RB-034279-11

PATIENT
  Age: 60 Year
  Sex: Female

DRUGS (11)
  1. SUBOXONE TABLET [Suspect]
     Indication: DRUG DEPENDENCE
     Route: 060
     Dates: start: 2005
  2. SUBOXONE FILM [Suspect]
     Indication: DRUG DEPENDENCE
     Dosage: SUBOXONE FILM
     Route: 060
  3. CIGARETTES [Suspect]
     Indication: TOBACCO ABUSE
     Dosage: 2 PACKS A DAY
     Route: 055
     Dates: end: 2008
  4. CIGARETTES [Suspect]
     Indication: NICOTINE DEPENDENCE
     Dosage: 1 PACKS A DAY
     Route: 055
     Dates: start: 2008
  5. INHALER TREATMENT FOR COPD/ALBUTEROL INHALER [Concomitant]
     Indication: CHRONIC OBSTRUCTIVE PULMONARY DISEASE
     Dosage: UNKNOWN DOSING REGIMEN; AS NEEDED
     Route: 055
  6. INHALER TREATMENT FOR COPD/ALBUTEROL INHALER [Concomitant]
     Indication: EMPHYSEMA
     Dosage: UNKNOWN DOSING REGIMEN; AS NEEDED
     Route: 055
  7. CHANTIX [Concomitant]
     Indication: TOBACCO ABUSE
     Dosage: UNKNOWN DOSING REGIMEN
     Route: 065
  8. ALBUTERAL NEBULIZER [Concomitant]
     Indication: CHRONIC OBSTRUCTIVE PULMONARY DISEASE
     Dosage: DOSING DETAILS UNKNOWN; AS NEEDED
     Route: 055
  9. ALBUTERAL NEBULIZER [Concomitant]
     Indication: EMPHYSEMA
     Dosage: DOSING DETAILS UNKNOWN; AS NEEDED
     Route: 055
  10. KLONOPIN [Concomitant]
     Indication: ANXIETY
     Route: 048
  11. KLONOPIN [Concomitant]
     Indication: ANXIETY
     Route: 048

REACTIONS (16)
  - Wrong technique in drug usage process [Not Recovered/Not Resolved]
  - Chronic obstructive pulmonary disease [Not Recovered/Not Resolved]
  - Cerebrovascular accident [Recovering/Resolving]
  - Granuloma [Recovered/Resolved]
  - Brain neoplasm [Not Recovered/Not Resolved]
  - Local swelling [Not Recovered/Not Resolved]
  - Paraesthesia [Not Recovered/Not Resolved]
  - Hypoaesthesia [Not Recovered/Not Resolved]
  - Fall [Not Recovered/Not Resolved]
  - Increased tendency to bruise [Not Recovered/Not Resolved]
  - Bruxism [Not Recovered/Not Resolved]
  - Oral administration complication [Not Recovered/Not Resolved]
  - Memory impairment [Not Recovered/Not Resolved]
  - Loss of consciousness [Recovered/Resolved]
  - Pneumonia [Recovered/Resolved]
  - Cataract [Not Recovered/Not Resolved]
